FAERS Safety Report 23517668 (Version 1)
Quarter: 2024Q1

REPORT INFORMATION
  Report Type: Spontaneous
  Country: US (occurrence: None)
  Receive Date: 20240212
  Receipt Date: 20240212
  Transmission Date: 20240410
  Serious: Yes (Death)
  Sender: FDA-Public Use
  Company Number: None

PATIENT
  Age: 65 Year
  Sex: Male

DRUGS (1)
  1. NEULASTA [Suspect]
     Active Substance: PEGFILGRASTIM
     Indication: Lung carcinoma cell type unspecified stage 0
     Dosage: OTHER FREQUENCY : ONCE 24 HR AFTER C;?
     Dates: start: 20230720, end: 20240201

REACTIONS (1)
  - Death [None]

NARRATIVE: CASE EVENT DATE: 20240201
